FAERS Safety Report 6258389-7 (Version None)
Quarter: 2009Q3

REPORT INFORMATION
  Report Type: 
  Country: None (occurrence: None)
  Receive Date: 20090707
  Receipt Date: 20090626
  Transmission Date: 20100115
  Serious: Yes (Other)
  Sender: FDA-Public Use
  Company Number: US-JNJFOC-20090602905

PATIENT
  Sex: Female
  Weight: 70.31 kg

DRUGS (1)
  1. REMICADE [Suspect]
     Indication: COLITIS ULCERATIVE
     Dosage: DURATION OF ABOUT 3 YEARS
     Route: 042

REACTIONS (4)
  - ARTHRITIS [None]
  - POST PROCEDURAL SEPSIS [None]
  - RHEUMATIC FEVER [None]
  - STREPTOCOCCAL INFECTION [None]
